FAERS Safety Report 7625186-7 (Version None)
Quarter: 2011Q3

REPORT INFORMATION
  Report Type: 
  Country: None (occurrence: None)
  Receive Date: 20110721
  Receipt Date: 20110624
  Transmission Date: 20111222
  Serious: No
  Sender: FDA-Public Use
  Company Number: US-BAYER-2011-055167

PATIENT
  Age: 56 Year
  Sex: Female

DRUGS (6)
  1. VITAMIN D [Concomitant]
     Dosage: 400 UNIT CAP, UNK
  2. MULTI-VITAMIN [Concomitant]
     Dosage: UNK
  3. CALCIUM CARBONATE [Concomitant]
     Dosage: 600 MG, UNK
  4. LISINOPRIL [Concomitant]
     Dosage: 10 MG, UNK
  5. BETASERON [Suspect]
     Dosage: 0.25 MG, QOD
     Route: 058
  6. PAXIL [Concomitant]
     Dosage: 10 MG, UNK

REACTIONS (1)
  - INJECTION SITE PAIN [None]
